FAERS Safety Report 20175765 (Version 2)
Quarter: 2022Q1

REPORT INFORMATION
  Report Type: Spontaneous
  Country: US (occurrence: None)
  Receive Date: 20211213
  Receipt Date: 20220203
  Transmission Date: 20220424
  Serious: Yes (Other)
  Sender: FDA-Public Use
  Company Number: US-FRESENIUS KABI-FK202113803

PATIENT
  Age: 33 Year
  Sex: Male
  Weight: 74.4 kg

DRUGS (4)
  1. ROPIVACAINE [Suspect]
     Active Substance: ROPIVACAINE
     Indication: Product used for unknown indication
     Dosage: 07:05 AM-LEFT ESP CATHETER WITH 20 ML 0.35 PERCENT ROPIVACAINE BOLUS?ROUTE OF ADMINISTRATION: BILATE
     Dates: start: 20211011
  2. ROPIVACAINE [Suspect]
     Active Substance: ROPIVACAINE
     Dosage: 07:16 AM-RIGHT ESP CATHETER WITH 20 ML 0.35 PERCENT ROPIVACAINE BOLUS
     Dates: start: 20211110
  3. ROPIVACAINE [Suspect]
     Active Substance: ROPIVACAINE
     Dosage: 14:23 PM-LEFT ESP CATHETER WITH 20 ML 0.2 PERCENT ROPIVACAINE BOLUS
     Dates: start: 20211110
  4. ROPIVACAINE [Suspect]
     Active Substance: ROPIVACAINE
     Dosage: 14:26 PM-RIGHT ESP CATHETER WITH 20 ML 0.2 PERCENT ROPIVACAINE BOLUS
     Dates: start: 20211110

REACTIONS (3)
  - Seizure [Recovered/Resolved]
  - Toxicity to various agents [Recovered/Resolved]
  - Mental status changes [Recovered/Resolved]

NARRATIVE: CASE EVENT DATE: 20211011
